FAERS Safety Report 5853998-9 (Version None)
Quarter: 2008Q3

REPORT INFORMATION
  Report Type: 
  Country: None (occurrence: None)
  Receive Date: 20080822
  Receipt Date: 20080812
  Transmission Date: 20090109
  Serious: Yes (Death)
  Sender: FDA-Public Use
  Company Number: NL-ROCHE-572669

PATIENT
  Sex: Female

DRUGS (11)
  1. RIVOTRIL [Suspect]
     Route: 048
  2. AMITRIPTYLINE HCL [Suspect]
     Indication: DEPRESSION
     Route: 048
     Dates: start: 20080114
  3. TRYPTIZOL [Suspect]
     Indication: DEPRESSION
     Route: 048
  4. SAROTEX [Suspect]
     Indication: DEPRESSION
     Route: 048
  5. SELOKEEN [Suspect]
     Indication: HYPERTENSION
     Route: 048
  6. TRANSTEC [Suspect]
     Indication: PAIN
     Dosage: DRUG:TRANSTEC PLASTER
     Route: 065
     Dates: start: 20080220
  7. NORVASC [Suspect]
     Indication: HYPERTENSION
     Route: 065
  8. DIOVAN [Suspect]
     Indication: HYPERTENSION
     Route: 065
  9. HYDROCHLOROTHIAZIDE [Suspect]
     Indication: HYPERTENSION
     Route: 065
  10. LIORESAL [Suspect]
     Route: 065
     Dates: start: 20080131
  11. ZOFRAN [Suspect]
     Indication: DRUG USE FOR UNKNOWN INDICATION
     Dosage: FORM:INJECTION
     Route: 065
     Dates: start: 20080222

REACTIONS (2)
  - COMA [None]
  - DEATH [None]
